FAERS Safety Report 4519581-2 (Version None)
Quarter: 2004Q4

REPORT INFORMATION
  Report Type: 
  Country: None (occurrence: None)
  Receive Date: 20041122
  Receipt Date: 20041103
  Transmission Date: 20050328
  Serious: Yes (Other)
  Sender: FDA-Public Use
  Company Number: 601341

PATIENT
  Sex: Male

DRUGS (2)
  1. ADVATE (ANTIHEMOPHILIC FACTOR(RECOMBINANT) PLASMA/ALBUMIN FREE METHOD [Suspect]
     Indication: COAGULATION FACTOR VIII LEVEL ABNORMAL
     Dosage: PRN
  2. ADVATE (ANTIHEMOPHILIC FACTOR(RECOMBINANT) PLASMA/ALBUMIN FREE METHOD [Suspect]
     Indication: HAEMORRHAGE INTRACRANIAL
     Dosage: PRN

REACTIONS (1)
  - FACTOR VIII INHIBITION [None]
